FAERS Safety Report 5372127-1 (Version None)
Quarter: 2007Q2

REPORT INFORMATION
  Report Type: 
  Country: None (occurrence: None)
  Receive Date: 20070615
  Receipt Date: 20070507
  Transmission Date: 20071010
  Serious: No
  Sender: FDA-Public Use
  Company Number: SP01233

PATIENT
  Age: 61 Year
  Sex: Male
  Weight: 71.2147 kg

DRUGS (3)
  1. XIFAXAN [Suspect]
     Indication: IRRITABLE BOWEL SYNDROME
     Dosage: 1200 MG (400 MG, 3 IN 1 D), ORAL
     Route: 048
     Dates: start: 20070504, end: 20070507
  2. PREGABALIN [Concomitant]
  3. PROSTATE MEDICATIONS [Concomitant]

REACTIONS (1)
  - NAUSEA [None]
